FAERS Safety Report 20032107 (Version 2)
Quarter: 2022Q1

REPORT INFORMATION
  Report Type: Report from Study
  Country: US (occurrence: US)
  Receive Date: 20211103
  Receipt Date: 20220116
  Transmission Date: 20220424
  Serious: Yes (Other)
  Sender: FDA-Public Use
  Company Number: US-REGENERON PHARMACEUTICALS, INC.-2021-97700

PATIENT
  Age: 64 Year
  Sex: Female

DRUGS (1)
  1. CASIRIVIMAB\IMDEVIMAB [Suspect]
     Active Substance: CASIRIVIMAB\IMDEVIMAB
     Indication: COVID-19
     Dosage: 2.4 G, SINGLE
     Route: 042
     Dates: start: 20211026, end: 20211026

REACTIONS (3)
  - Dizziness [Unknown]
  - Hypotension [Recovered/Resolved]
  - Incorrect dose administered [Unknown]

NARRATIVE: CASE EVENT DATE: 20211026
